FAERS Safety Report 7623653-3 (Version None)
Quarter: 2011Q3

REPORT INFORMATION
  Report Type: 
  Country: None (occurrence: None)
  Receive Date: 20110720
  Receipt Date: 20110715
  Transmission Date: 20111222
  Serious: Yes (Other)
  Sender: FDA-Public Use
  Company Number: JP-BRACCO-005026

PATIENT
  Age: 73 Year
  Sex: Male

DRUGS (2)
  1. IOPAMIDOL [Suspect]
     Indication: COMPUTERISED TOMOGRAM
     Route: 042
     Dates: start: 20110708, end: 20110708
  2. IOPAMIDOL [Suspect]
     Indication: ARTERIOSCLEROSIS OBLITERANS
     Route: 042
     Dates: start: 20110708, end: 20110708

REACTIONS (3)
  - BLOOD PRESSURE DECREASED [None]
  - FEELING ABNORMAL [None]
  - EYELID OEDEMA [None]
